FAERS Safety Report 8622893-4 (Version None)
Quarter: 2012Q3

REPORT INFORMATION
  Report Type: 
  Country: None (occurrence: None)
  Receive Date: 20120827
  Receipt Date: 20120821
  Transmission Date: 20120928
  Serious: No
  Sender: FDA-Public Use
  Company Number: PHHY2012BR063017

PATIENT
  Sex: Female
  Weight: 70 kg

DRUGS (8)
  1. PHENOBARBITAL TAB [Concomitant]
     Indication: CONVULSION
     Dosage: 2 DF, DAILY
     Route: 048
     Dates: start: 20100701
  2. EXELON [Concomitant]
     Indication: DEMENTIA ALZHEIMER'S TYPE
     Dosage: 4.6 MG, DAILY
     Route: 062
     Dates: start: 20120301, end: 20120401
  3. PRAMIPEXOLE DIHYDROCHLORIDE [Concomitant]
     Indication: PARKINSON'S DISEASE
     Dosage: 1 DF, (AT NIGHT) DAILY
     Route: 048
  4. PHENYTOIN [Concomitant]
     Indication: CONVULSION
     Dosage: 100 MG, BID
  5. PROLOPA [Concomitant]
     Indication: PARKINSON'S DISEASE
     Dosage: 100 MG, TID(IN FASTING, AT 11AM AND 4PM)
  6. STALEVO 100 [Suspect]
     Indication: PARKINSON'S DISEASE
     Dosage: 3 DF, 200/50/12.5 MG DAILY (IN FASTING, AT 11:00 AND 16:00)
     Route: 048
     Dates: start: 20120101
  7. DEPAKOTE [Concomitant]
     Indication: CONVULSION
     Dosage: 3 DF, DAILY
     Route: 048
     Dates: start: 20100101, end: 20111101
  8. QUETIAPINE [Concomitant]
     Indication: ANXIETY
     Dosage: 1 DF, DAILY
     Route: 048

REACTIONS (5)
  - FEELING ABNORMAL [None]
  - MALAISE [None]
  - SALIVARY HYPERSECRETION [None]
  - NAUSEA [None]
  - DIZZINESS [None]
